FAERS Safety Report 15207684 (Version 1)
Quarter: 2018Q3

REPORT INFORMATION
  Report Type: Spontaneous
  Country: CA (occurrence: CA)
  Receive Date: 20180727
  Receipt Date: 20180727
  Transmission Date: 20181010
  Serious: Yes (Death)
  Sender: FDA-Public Use
  Company Number: CA-MALLINCKRODT-T201803094

PATIENT
  Age: 34 Year
  Sex: Male
  Weight: 90 kg

DRUGS (1)
  1. METHADOSE [Suspect]
     Active Substance: METHADONE HYDROCHLORIDE
     Indication: DRUG DEPENDENCE
     Dosage: 130 MG, ONE EVERY DAY
     Route: 048

REACTIONS (7)
  - Blood glucose increased [Fatal]
  - Electrocardiogram QT prolonged [Fatal]
  - Heart rate increased [Fatal]
  - Cardiac arrest [Fatal]
  - Unresponsive to stimuli [Fatal]
  - Respiratory rate increased [Fatal]
  - Pupil fixed [Fatal]
